FAERS Safety Report 10145290 (Version 1)
Quarter: 2014Q2

REPORT INFORMATION
  Report Type: Spontaneous
  Country: FR (occurrence: FR)
  Receive Date: 20140501
  Receipt Date: 20140501
  Transmission Date: 20141212
  Serious: Yes (Other)
  Sender: FDA-Public Use
  Company Number: FR-ROCHE-1393128

PATIENT
  Age: 69 Year
  Sex: Male

DRUGS (8)
  1. VEMURAFENIB [Suspect]
     Indication: METASTATIC MALIGNANT MELANOMA
     Route: 065
     Dates: start: 201110
  2. VEMURAFENIB [Suspect]
     Dosage: VEMURAFENIB WAS MAINTAINED.
     Route: 065
  3. VEMURAFENIB [Suspect]
     Dosage: VEMURAFENIB WAS SWITCHED TO FOTEMUSTINE.
     Route: 065
  4. RAMIPRIL [Concomitant]
     Indication: HYPERTENSION
  5. LYSINE ACETYLSALICYLATE [Concomitant]
  6. SILODOSIN [Concomitant]
     Indication: BENIGN PROSTATIC HYPERPLASIA
  7. NICARDIPINE [Concomitant]
     Indication: HYPERTENSION
  8. FOTEMUSTINE [Concomitant]
     Indication: METASTATIC MALIGNANT MELANOMA

REACTIONS (5)
  - Renal failure acute [Recovered/Resolved]
  - Squamous cell carcinoma of skin [Unknown]
  - Photosensitivity reaction [Unknown]
  - Hepatocellular injury [Unknown]
  - Cholestasis [Unknown]
